FAERS Safety Report 4311433-6 (Version None)
Quarter: 2004Q1

REPORT INFORMATION
  Report Type: 
  Country: None (occurrence: None)
  Receive Date: 20040302
  Receipt Date: 20040119
  Transmission Date: 20041129
  Serious: No
  Sender: FDA-Public Use
  Company Number: 200327273BWH

PATIENT
  Age: 49 Year
  Sex: Male

DRUGS (1)
  1. LEVITRA [Suspect]
     Indication: ERECTILE DYSFUNCTION

REACTIONS (3)
  - ERECTILE DYSFUNCTION [None]
  - ERYTHEMA [None]
  - RHINORRHOEA [None]
